FAERS Safety Report 8923108 (Version 2)
Quarter: 2013Q1

REPORT INFORMATION
  Report Type: Spontaneous
  Country: US (occurrence: US)
  Receive Date: 20121124
  Receipt Date: 20130103
  Transmission Date: 20140127
  Serious: Yes (Other)
  Sender: FDA-Public Use
  Company Number: PHEH2012US022954

PATIENT
  Sex: Female

DRUGS (1)
  1. DIOVAN HCT [Suspect]
     Dosage: 1 DF (160MG VALSAR/12.5MG HCT), QD
     Dates: start: 2003

REACTIONS (5)
  - Malignant melanoma [Unknown]
  - Aphagia [Unknown]
  - Weight decreased [Unknown]
  - Pain [Unknown]
  - Dry mouth [Unknown]
